FAERS Safety Report 6097677-4 (Version None)
Quarter: 2009Q1

REPORT INFORMATION
  Report Type: 
  Country: None (occurrence: None)
  Receive Date: 20090227
  Receipt Date: 20090217
  Transmission Date: 20090719
  Serious: Yes (Other)
  Sender: FDA-Public Use
  Company Number: AT-PFIZER INC-2009157295

PATIENT

DRUGS (1)
  1. TOLTERODINE TARTRATE [Suspect]
     Indication: INCONTINENCE

REACTIONS (1)
  - NERVOUS SYSTEM DISORDER [None]
